FAERS Safety Report 11152895 (Version 1)
Quarter: 2015Q2

REPORT INFORMATION
  Report Type: Spontaneous
  Country: US (occurrence: US)
  Receive Date: 20150601
  Receipt Date: 20150601
  Transmission Date: 20150821
  Serious: Yes (Other)
  Sender: FDA-Public Use
  Company Number: US-BAYER-2015-283128

PATIENT
  Age: 33 Year
  Sex: Male
  Weight: 86 kg

DRUGS (1)
  1. COPPERTONE KIDS SPF 50 SPRAY [Suspect]
     Active Substance: AVOBENZONE\HOMOSALATE\OCTISALATE\OCTOCRYLENE\OXYBENZONE
     Dosage: UNK, ONCE
     Route: 045
     Dates: start: 20150526, end: 20150526

REACTIONS (4)
  - Vomiting [Recovered/Resolved]
  - Choking [Recovered/Resolved]
  - Headache [Recovered/Resolved]
  - Accidental exposure to product [None]

NARRATIVE: CASE EVENT DATE: 20150526
